FAERS Safety Report 5932501-9 (Version None)
Quarter: 2008Q4

REPORT INFORMATION
  Report Type: 
  Country: None (occurrence: None)
  Receive Date: 20081028
  Receipt Date: 20081016
  Transmission Date: 20090506
  Serious: Yes (Other)
  Sender: FDA-Public Use
  Company Number: FR-GENENTECH-270347

PATIENT
  Age: 62 Year
  Sex: Female

DRUGS (2)
  1. AVASTIN [Suspect]
     Indication: BREAST CANCER
     Dosage: UNK
     Route: 065
     Dates: start: 20080101
  2. PACLITAXEL [Concomitant]
     Indication: DRUG USE FOR UNKNOWN INDICATION
     Dosage: UNK

REACTIONS (2)
  - NECROSIS [None]
  - SKIN DISORDER [None]
